FAERS Safety Report 24004979 (Version 1)
Quarter: 2024Q2

REPORT INFORMATION
  Report Type: Spontaneous
  Country: US (occurrence: None)
  Receive Date: 20240621
  Receipt Date: 20240621
  Transmission Date: 20240715
  Serious: Yes (Death)
  Sender: FDA-Public Use
  Company Number: None

PATIENT
  Age: 80 Year
  Sex: Male

DRUGS (1)
  1. PIRFENIDONE [Suspect]
     Active Substance: PIRFENIDONE
     Indication: Interstitial lung disease
     Dosage: 801MG TID ORAL
     Route: 048
     Dates: start: 20230919, end: 20240615

REACTIONS (5)
  - Ultrasound scan abnormal [None]
  - Right ventricular systolic pressure increased [None]
  - Respiratory failure [None]
  - Interstitial lung disease [None]
  - Condition aggravated [None]

NARRATIVE: CASE EVENT DATE: 20240620
